FAERS Safety Report 6810459-8 (Version None)
Quarter: 2010Q2

REPORT INFORMATION
  Report Type: 
  Country: None (occurrence: None)
  Receive Date: 20100630
  Receipt Date: 20100623
  Transmission Date: 20101027
  Serious: Yes (Death)
  Sender: FDA-Public Use
  Company Number: US-AMGEN-QUU407365

PATIENT
  Sex: Male

DRUGS (3)
  1. NPLATE [Suspect]
     Indication: IDIOPATHIC THROMBOCYTOPENIC PURPURA
     Dates: start: 20090307, end: 20100427
  2. CORTICOSTEROIDS [Concomitant]
     Dates: start: 20090209
  3. IMMU-G [Concomitant]
     Dates: start: 20090227

REACTIONS (3)
  - CARDIAC ARREST [None]
  - CARDIAC OPERATION [None]
  - CARDIAC PROCEDURE COMPLICATION [None]
